FAERS Safety Report 9070233 (Version 1)
Quarter: 2013Q1

REPORT INFORMATION
  Report Type: Spontaneous
  Country: US (occurrence: US)
  Receive Date: 20130215
  Receipt Date: 20130215
  Transmission Date: 20140127
  Serious: Yes (Other)
  Sender: FDA-Public Use
  Company Number: US-BAYER-2013-017498

PATIENT
  Age: 55 Year
  Sex: Male

DRUGS (2)
  1. STIVARGA [Suspect]
  2. STIVARGA [Suspect]
     Dosage: 120 MG, UNK

REACTIONS (2)
  - Blood bilirubin increased [None]
  - Blood bilirubin increased [None]
